FAERS Safety Report 22306509 (Version 2)
Quarter: 2023Q2

REPORT INFORMATION
  Report Type: Spontaneous
  Country: US (occurrence: None)
  Receive Date: 20230511
  Receipt Date: 20230622
  Transmission Date: 20230721
  Serious: Yes (Other)
  Sender: FDA-Public Use
  Company Number: 2023A104584

PATIENT
  Sex: Female

DRUGS (1)
  1. IMFINZI [Suspect]
     Active Substance: DURVALUMAB
     Route: 042
     Dates: start: 2021

REACTIONS (6)
  - Limb injury [Unknown]
  - Metastases to central nervous system [Unknown]
  - Fall [Unknown]
  - Flushing [Recovered/Resolved]
  - Fatigue [Unknown]
  - Feeling abnormal [Unknown]
